FAERS Safety Report 5493123-X (Version None)
Quarter: 2007Q4

REPORT INFORMATION
  Report Type: 
  Country: None (occurrence: None)
  Receive Date: 20071019
  Receipt Date: 20071011
  Transmission Date: 20080405
  Serious: Yes (Hospitalization)
  Sender: FDA-Public Use
  Company Number: 2007SP018627

PATIENT
  Age: 59 Year
  Sex: Male
  Weight: 89.4 kg

DRUGS (5)
  1. TEMOZOLOMIDE [Suspect]
     Indication: GLIOBLASTOMA
     Dosage: 160 QD; PO; 160 MG; PO
     Route: 048
     Dates: start: 20070712, end: 20070822
  2. TEMOZOLOMIDE [Suspect]
     Indication: GLIOBLASTOMA
     Dosage: 160 QD; PO; 160 MG; PO
     Route: 048
     Dates: start: 20070920, end: 20070920
  3. FELODIPINE [Concomitant]
  4. LEVOTHYROXINE SODIUM [Concomitant]
  5. PHENYTOIN [Concomitant]

REACTIONS (3)
  - CATHETER SITE INFECTION [None]
  - DIARRHOEA [None]
  - ENTERITIS INFECTIOUS [None]
